FAERS Safety Report 6067073-4 (Version None)
Quarter: 2009Q1

REPORT INFORMATION
  Report Type: 
  Country: None (occurrence: None)
  Receive Date: 20090205
  Receipt Date: 20090202
  Transmission Date: 20090719
  Serious: Yes (Hospitalization)
  Sender: FDA-Public Use
  Company Number: US-MERCK-0902USA00240

PATIENT
  Age: 59 Year
  Sex: Male

DRUGS (4)
  1. COZAAR [Suspect]
     Indication: HYPERTENSION
     Route: 048
     Dates: start: 19990101
  2. METOPROLOL [Concomitant]
     Route: 065
  3. PLAVIX [Concomitant]
     Route: 065
  4. CRESTOR [Concomitant]
     Route: 065

REACTIONS (5)
  - DRY EYE [None]
  - EYE DISORDER [None]
  - PROSTATOMEGALY [None]
  - SOMNOLENCE [None]
  - VISION BLURRED [None]
